FAERS Safety Report 8783228 (Version 2)
Quarter: 2012Q4

REPORT INFORMATION
  Report Type: 
  Country: US (occurrence: US)
  Receive Date: 20120913
  Receipt Date: 20121206
  Transmission Date: 20130627
  Serious: No
  Sender: FDA-Public Use
  Company Number: US-VERTEX PHARMACEUTICAL INC.-AE-2012-009590

PATIENT
  Age: 56 Year
  Sex: Female

DRUGS (5)
  1. VX-950 (TELAPREVIR) [Suspect]
     Indication: HEPATITIS C
     Dosage: 750 mg, tid
     Route: 048
     Dates: start: 20120501, end: 20120601
  2. PEGASYS [Concomitant]
     Indication: HEPATITIS C
     Dosage: UNK
     Dates: start: 20120501
  3. PEGASYS [Concomitant]
     Dosage: 90 ?g, qw
     Route: 058
     Dates: start: 2012, end: 20120601
  4. RIBAVIRIN [Concomitant]
     Indication: HEPATITIS C
     Dosage: UNK
     Dates: start: 20120501
  5. RIBAVIRIN [Concomitant]
     Dosage: 400 mg, qd
     Dates: end: 20120601

REACTIONS (5)
  - White blood cell count decreased [Not Recovered/Not Resolved]
  - Ischaemia [Not Recovered/Not Resolved]
  - Dyspnoea [Not Recovered/Not Resolved]
  - Fatigue [Not Recovered/Not Resolved]
  - Haemoglobin decreased [Not Recovered/Not Resolved]
